FAERS Safety Report 9633201 (Version 1)
Quarter: 2013Q4

REPORT INFORMATION
  Report Type: Spontaneous
  Country: US (occurrence: None)
  Receive Date: 20131018
  Receipt Date: 20131018
  Transmission Date: 20140711
  Serious: Yes (Hospitalization)
  Sender: FDA-Public Use
  Company Number: None

PATIENT
  Age: 48 Year
  Sex: Female
  Weight: 118 kg

DRUGS (8)
  1. XOLAIR [Suspect]
     Indication: ASTHMA
     Dosage: 1 PREVIOUS INJECTION 1 MONTH PRI
     Route: 058
  2. BENZONATATE [Concomitant]
  3. HYDROMORPHONE [Concomitant]
  4. METFORMIN [Concomitant]
  5. ALPRAZOLAM [Concomitant]
  6. NUTRITIONAL SUPP [Concomitant]
  7. RANITIDINE [Concomitant]
  8. ALBUTEROL SULFATE [Concomitant]

REACTIONS (3)
  - Pruritus [None]
  - Rash [None]
  - Throat tightness [None]
